FAERS Safety Report 9776402 (Version 1)
Quarter: 2013Q4

REPORT INFORMATION
  Report Type: Spontaneous
  Country: US (occurrence: US)
  Receive Date: 20131220
  Receipt Date: 20131220
  Transmission Date: 20140711
  Serious: No
  Sender: FDA-Public Use
  Company Number: US-BIOGENIDEC-2013BI086101

PATIENT
  Age: 61 Year
  Sex: Female

DRUGS (1)
  1. TECFIDERA [Suspect]
     Indication: MULTIPLE SCLEROSIS
     Route: 048
     Dates: start: 20130724

REACTIONS (5)
  - Adverse event [Unknown]
  - Nausea [Recovered/Resolved]
  - Abdominal pain upper [Unknown]
  - Abdominal pain [Recovered/Resolved]
  - Vomiting [Recovered/Resolved]
